FAERS Safety Report 6360911-7 (Version None)
Quarter: 2009Q3

REPORT INFORMATION
  Report Type: 
  Country: None (occurrence: None)
  Receive Date: 20090918
  Receipt Date: 20090825
  Transmission Date: 20100115
  Serious: Yes (Other)
  Sender: FDA-Public Use
  Company Number: US-PFIZER INC-2009268307

PATIENT
  Sex: Female

DRUGS (3)
  1. NAVANE [Suspect]
     Indication: BIPOLAR I DISORDER
     Dosage: 5 MG, DAILY
     Route: 048
     Dates: start: 20060101
  2. SYNTHROID [Concomitant]
     Indication: HYPOTHYROIDISM
     Dosage: 0.112 MG, DAILY
     Route: 048
  3. ACETYLSALICYLIC ACID [Concomitant]
     Dosage: 81 MG, UNK
     Route: 048

REACTIONS (6)
  - DRY MOUTH [None]
  - HALLUCINATION, AUDITORY [None]
  - HYPERTENSION [None]
  - INCORRECT DOSE ADMINISTERED [None]
  - SKIN TIGHTNESS [None]
  - WEIGHT INCREASED [None]
